FAERS Safety Report 10271181 (Version 1)
Quarter: 2014Q3

REPORT INFORMATION
  Report Type: Report from Study
  Country: PL (occurrence: PL)
  Receive Date: 20140701
  Receipt Date: 20140701
  Transmission Date: 20150326
  Serious: Yes (Other)
  Sender: FDA-Public Use
  Company Number: PL-PFIZER INC-2014179425

PATIENT
  Age: 67 Year
  Sex: Female

DRUGS (15)
  1. SUNITINIB MALATE [Suspect]
     Active Substance: SUNITINIB MALATE
     Indication: RENAL CELL CARCINOMA
     Dosage: UNK
     Dates: start: 20120706, end: 20140424
  2. DIUVER [Concomitant]
     Active Substance: TORSEMIDE
     Indication: HYPERTENSION
     Dosage: UNK
     Dates: start: 20120907
  3. GASEC [Concomitant]
     Indication: DYSPEPSIA
     Dosage: UNK
     Dates: start: 20120829
  4. AZULAN [Concomitant]
     Indication: MUCOSAL INFLAMMATION
     Dosage: UNK
     Route: 048
     Dates: start: 20120829, end: 20120915
  5. CAPTOPRIL. [Concomitant]
     Active Substance: CAPTOPRIL
     Indication: HYPERTENSION
     Dosage: UNK
     Dates: start: 20120907
  6. VALSACOR [Concomitant]
     Active Substance: VALSARTAN
     Indication: HYPERTENSION
     Dosage: UNK
     Dates: start: 20120907
  7. NASAN [Concomitant]
     Indication: INSOMNIA
     Dosage: UNK
     Dates: start: 20121115
  8. LORAFEN [Concomitant]
     Active Substance: LORAZEPAM
     Indication: INSOMNIA
     Dosage: UNK
     Dates: start: 20130527
  9. RINOPANTEINA [Concomitant]
     Indication: NASAL DRYNESS
     Dosage: UNK
     Dates: start: 20130131
  10. UREA. [Concomitant]
     Active Substance: UREA
     Indication: HAND-FOOT-GENITAL SYNDROME
     Dosage: UNK
     Dates: start: 20130131
  11. HEPATIL [Concomitant]
     Indication: HEPATOTOXICITY
     Dosage: UNK
     Dates: start: 20120903, end: 20120917
  12. AMLOPIN [Concomitant]
     Active Substance: AMLODIPINE BESYLATE
     Indication: HYPERTENSION
     Dosage: UNK
     Dates: start: 20120907
  13. LIPANTHYL [Concomitant]
     Active Substance: FENOFIBRATE
     Indication: HYPERCHOLESTEROLAEMIA
     Dosage: UNK
     Dates: start: 20120917
  14. EUTHYROX [Concomitant]
     Active Substance: LEVOTHYROXINE SODIUM
     Indication: HYPOTHYROIDISM
     Dosage: UNK
     Dates: start: 20130829
  15. HEPA-MERZ [Concomitant]
     Indication: HEPATOTOXICITY
     Dosage: UNK
     Dates: start: 20120907

REACTIONS (1)
  - Myocardial infarction [Recovered/Resolved with Sequelae]

NARRATIVE: CASE EVENT DATE: 20140509
